FAERS Safety Report 17614650 (Version 1)
Quarter: 2020Q2

REPORT INFORMATION
  Report Type: Spontaneous
  Country: CA (occurrence: CA)
  Receive Date: 20200402
  Receipt Date: 20200402
  Transmission Date: 20200713
  Serious: Yes (Other)
  Sender: FDA-Public Use
  Company Number: CA-TEVA-2020-CA-1216934

PATIENT
  Age: 75 Year
  Sex: Female

DRUGS (4)
  1. ATORVASTATIN CALCIUM. [Suspect]
     Active Substance: ATORVASTATIN CALCIUM
     Indication: PRODUCT USED FOR UNKNOWN INDICATION
     Route: 065
  2. PARIET [Concomitant]
     Active Substance: RABEPRAZOLE SODIUM
  3. ALTACE [Concomitant]
     Active Substance: RAMIPRIL
  4. ASA [Concomitant]
     Active Substance: ASPIRIN

REACTIONS (3)
  - Product substitution issue [Recovered/Resolved]
  - Reaction to excipient [Recovered/Resolved]
  - Hypersensitivity [Recovered/Resolved]
